FAERS Safety Report 25257367 (Version 1)
Quarter: 2025Q2

REPORT INFORMATION
  Report Type: Report from Study
  Country: US (occurrence: US)
  Receive Date: 20250430
  Receipt Date: 20250430
  Transmission Date: 20250717
  Serious: Yes (Hospitalization)
  Sender: EISAI
  Company Number: US-Eisai-EC-2025-188139

PATIENT
  Age: 62 Year
  Sex: Female
  Weight: 142.8 kg

DRUGS (9)
  1. LENVIMA [Suspect]
     Active Substance: LENVATINIB
     Indication: Endometrial cancer
     Dates: start: 20250123, end: 202504
  2. LENVIMA [Suspect]
     Active Substance: LENVATINIB
     Dosage: DOSE REDUCED UNKNOWN
     Dates: start: 202504, end: 202504
  3. KEYTRUDA [Concomitant]
     Active Substance: PEMBROLIZUMAB
  4. LOSARTAN POTASSIUM [Concomitant]
     Active Substance: LOSARTAN POTASSIUM
  5. CENTRUM ADULTS [Concomitant]
  6. BENEFIBER [Concomitant]
     Active Substance: STARCH, WHEAT
  7. DULOXETINE HYDROCHLORIDE [Concomitant]
     Active Substance: DULOXETINE HYDROCHLORIDE
  8. TYLENOL [Concomitant]
     Active Substance: ACETAMINOPHEN
  9. ELIQUIS [Concomitant]
     Active Substance: APIXABAN

REACTIONS (7)
  - Muscular weakness [Unknown]
  - Hypertension [Unknown]
  - Urinary incontinence [Unknown]
  - Asthenia [Unknown]
  - Constipation [Unknown]
  - Pain [Unknown]
  - Insomnia [Unknown]

NARRATIVE: CASE EVENT DATE: 20250101
